FAERS Safety Report 8337149-7 (Version None)
Quarter: 2012Q2

REPORT INFORMATION
  Report Type: 
  Country: None (occurrence: None)
  Receive Date: 20120504
  Receipt Date: 20120430
  Transmission Date: 20120825
  Serious: Yes (Hospitalization)
  Sender: FDA-Public Use
  Company Number: US-B.I. PHARMACEUTICALS,INC./RIDGEFIELD-2012-BP-09802BP

PATIENT
  Sex: Male

DRUGS (3)
  1. SYMBICORT [Concomitant]
     Route: 055
  2. ALPRAZOLAM [Concomitant]
     Indication: ANXIETY
     Route: 048
  3. SPIRIVA [Suspect]
     Indication: BRONCHITIS CHRONIC
     Dosage: 18 MCG
     Route: 055
     Dates: start: 20110101

REACTIONS (2)
  - PULMONARY CONGESTION [None]
  - SINUSITIS [None]
